FAERS Safety Report 8681579 (Version 2)
Quarter: 2012Q4

REPORT INFORMATION
  Report Type: 
  Country: JP (occurrence: JP)
  Receive Date: 20120725
  Receipt Date: 20120828
  Transmission Date: 20130627
  Serious: Yes (Death, Other)
  Sender: FDA-Public Use
  Company Number: PHHY2012JP061906

PATIENT
  Age: 61 Year
  Sex: Male

DRUGS (4)
  1. VOLTAREN SR [Suspect]
     Indication: CANCER PAIN
     Dosage: 75 mg daily
     Route: 048
  2. OXYCONTIN [Concomitant]
     Indication: CANCER PAIN
     Dosage: 180 mg
     Route: 048
  3. GABAPENTIN [Concomitant]
     Indication: CANCER PAIN
     Dosage: 400 mg,
     Route: 048
  4. OXINORM [Concomitant]
     Indication: CANCER PAIN
     Dosage: 30 mg, UNK
     Route: 048

REACTIONS (3)
  - Gastrointestinal perforation [Fatal]
  - Interstitial lung disease [Unknown]
  - Diverticulum intestinal [Unknown]
